FAERS Safety Report 8143985-2 (Version None)
Quarter: 2012Q1

REPORT INFORMATION
  Report Type: 
  Country: None (occurrence: None)
  Receive Date: 20120217
  Receipt Date: 20120217
  Transmission Date: 20120608
  Serious: Yes (Other)
  Sender: FDA-Public Use
  Company Number: None

PATIENT
  Sex: Female

DRUGS (2)
  1. PEGASYS [Concomitant]
     Indication: HEPATITIS C
     Dosage: 180MCG
     Route: 058
     Dates: start: 20110307, end: 20120206
  2. RIBAVIRIN [Suspect]
     Indication: HEPATITIS C
     Dosage: 600MG
     Route: 048
     Dates: start: 20110307, end: 20120206

REACTIONS (2)
  - MATERNAL EXPOSURE DURING PREGNANCY [None]
  - PREGNANCY [None]
